FAERS Safety Report 10697265 (Version 5)
Quarter: 2015Q1

REPORT INFORMATION
  Report Type: Report from Study
  Country: CN (occurrence: CN)
  Receive Date: 20150108
  Receipt Date: 20150310
  Transmission Date: 20150721
  Serious: Yes (Hospitalization)
  Sender: FDA-Public Use
  Company Number: CN-ROCHE-1275543

PATIENT
  Age: 60 Year
  Sex: Male

DRUGS (16)
  1. PREDNISONE. [Suspect]
     Active Substance: PREDNISONE
     Indication: DIFFUSE LARGE B-CELL LYMPHOMA
     Dosage: LAST DOSE: 100 MG, MOST RECENT DOSE PRIOR TO AE ONSET 07/SEP/2013.
     Route: 048
     Dates: start: 20130627
  2. PARACETAMOL [Concomitant]
     Active Substance: ACETAMINOPHEN
     Indication: PAIN
     Route: 065
     Dates: start: 20130902, end: 20130902
  3. HUMAN INSULIN [Concomitant]
     Active Substance: INSULIN HUMAN
     Route: 065
     Dates: start: 20130827
  4. DOXORUBICIN [Suspect]
     Active Substance: DOXORUBICIN
     Indication: DIFFUSE LARGE B-CELL LYMPHOMA
     Dosage: LAST DOSE: 64.4 MG, MOST RECENT DOSE PRIOR TO AE ONSET 03/SEP/2013.
     Route: 042
     Dates: start: 20130627
  5. VINCRISTINE [Suspect]
     Active Substance: VINCRISTINE
     Indication: DIFFUSE LARGE B-CELL LYMPHOMA
     Dosage: LAST DOSE: 2 MG, MOST RECENT DOSE PRIOR TO AE ONSET 03/SEP/2013.
     Route: 050
     Dates: start: 20130627
  6. HUMAN SERUM ALBUMIN [Concomitant]
     Route: 065
     Dates: start: 20130827, end: 20130902
  7. PALONOSETRON HYDROCHLORIDE [Concomitant]
     Active Substance: PALONOSETRON HYDROCHLORIDE
     Indication: VOMITING
     Route: 065
     Dates: start: 20130903, end: 20130903
  8. CYCLOPHOSPHAMIDE. [Suspect]
     Active Substance: CYCLOPHOSPHAMIDE
     Indication: DIFFUSE LARGE B-CELL LYMPHOMA
     Dosage: LAST DOSE: 965.6 MG, MOST RECENT DOSE PRIOR TO AE ONSET 03/SEP/2013.
     Route: 042
     Dates: start: 20130627
  9. OMEPRAZOLE. [Concomitant]
     Active Substance: OMEPRAZOLE
     Route: 065
     Dates: start: 20130903, end: 20130909
  10. LANSOPRAZOLE. [Concomitant]
     Active Substance: LANSOPRAZOLE
     Route: 065
     Dates: start: 20130903, end: 20130903
  11. OMEPRAZOLE. [Concomitant]
     Active Substance: OMEPRAZOLE
     Dosage: INDICATION:PROTECT GASTRIC MUCOSA
     Route: 065
     Dates: start: 20130808, end: 20130812
  12. PROMETHAZINE HYDROCHLORIDE. [Concomitant]
     Active Substance: PROMETHAZINE HYDROCHLORIDE
     Indication: SEDATION
     Route: 065
     Dates: start: 20130902, end: 20130902
  13. FILGRASTIM [Concomitant]
     Active Substance: FILGRASTIM
     Route: 065
     Dates: start: 20130904, end: 20130904
  14. OBINUTUZUMAB [Suspect]
     Active Substance: OBINUTUZUMAB
     Indication: DIFFUSE LARGE B-CELL LYMPHOMA
     Dosage: DOSE CONCENTRATION OF 4 MG/ML, LAST DOSE VOLUME: 1000 ML, MOST RECENT DOSE PRIOR TO AE ONSET 02/SEP/
     Route: 042
     Dates: start: 20130626
  15. HUMAN INSULIN [Concomitant]
     Active Substance: INSULIN HUMAN
     Indication: DIABETES MELLITUS
     Route: 065
     Dates: start: 20130701
  16. INSULIN [Concomitant]
     Active Substance: INSULIN NOS
     Route: 065
     Dates: start: 20130911, end: 20130911

REACTIONS (2)
  - Febrile neutropenia [Recovered/Resolved]
  - Gastroenteritis [Recovered/Resolved]

NARRATIVE: CASE EVENT DATE: 20130909
